FAERS Safety Report 4872176-3 (Version None)
Quarter: 2006Q1

REPORT INFORMATION
  Report Type: 
  Country: None (occurrence: None)
  Receive Date: 20060103
  Receipt Date: 20051220
  Transmission Date: 20060701
  Serious: Yes (Other)
  Sender: FDA-Public Use
  Company Number: 2005140534

PATIENT
  Age: 32 Year
  Sex: Female
  Weight: 47.6277 kg

DRUGS (2)
  1. SINUTAB SINUS  EXTRA STRENGTH [Suspect]
     Indication: NASOPHARYNGITIS
     Dosage: ONE CAPLET, ONCE, ORAL
     Route: 048
     Dates: start: 20051010, end: 20051010
  2. PARACETAMOL                           (PARACETAMOL) [Suspect]
     Indication: NASOPHARYNGITIS
     Dosage: 2 TABLETS, ORAL
     Route: 048
     Dates: start: 20051009

REACTIONS (21)
  - ANXIETY [None]
  - ASTHENIA [None]
  - BACK PAIN [None]
  - BLOOD PRESSURE INCREASED [None]
  - CARDIAC DISORDER [None]
  - CHEST PAIN [None]
  - DECREASED APPETITE [None]
  - DIZZINESS [None]
  - DYSPNOEA [None]
  - DYSSTASIA [None]
  - EMOTIONAL DISTRESS [None]
  - FATIGUE [None]
  - FEAR [None]
  - FLASHBACK [None]
  - HEART RATE INCREASED [None]
  - HEART RATE IRREGULAR [None]
  - INCOHERENT [None]
  - INSOMNIA [None]
  - LETHARGY [None]
  - PALPITATIONS [None]
  - TREMOR [None]
